FAERS Safety Report 6604363-8 (Version None)
Quarter: 2010Q1

REPORT INFORMATION
  Report Type: 
  Country: None (occurrence: None)
  Receive Date: 20100226
  Receipt Date: 20091103
  Transmission Date: 20100710
  Serious: Yes (Other)
  Sender: FDA-Public Use
  Company Number: A0805670A

PATIENT
  Age: 26 Year
  Sex: Male

DRUGS (2)
  1. LAMICTAL CD [Suspect]
     Dosage: 150MG TWICE PER DAY
     Route: 048
     Dates: start: 20080701
  2. NO CONCURRENT MEDICATION [Concomitant]

REACTIONS (6)
  - CONTUSION [None]
  - CONVULSION [None]
  - IRRITABILITY [None]
  - SCAR [None]
  - SOMNOLENCE [None]
  - TREATMENT NONCOMPLIANCE [None]
